FAERS Safety Report 19068262 (Version 1)
Quarter: 2021Q1

REPORT INFORMATION
  Report Type: Spontaneous
  Country: US (occurrence: US)
  Receive Date: 20210329
  Receipt Date: 20210329
  Transmission Date: 20210420
  Serious: No
  Sender: FDA-Public Use
  Company Number: US-SA-2021SA102391

PATIENT
  Age: 20 Year
  Sex: Female
  Weight: 80.7 kg

DRUGS (4)
  1. DUPIXENT [Suspect]
     Active Substance: DUPILUMAB
     Dosage: 300 MG, QOW
     Route: 058
  2. CLARITIN [CLARITHROMYCIN] [Concomitant]
     Active Substance: CLARITHROMYCIN
  3. CLOBETASOL [Concomitant]
     Active Substance: CLOBETASOL
  4. NEXPLANON [Concomitant]
     Active Substance: ETONOGESTREL

REACTIONS (8)
  - Eczema [Not Recovered/Not Resolved]
  - Injection site pain [Recovered/Resolved]
  - Therapy interrupted [Unknown]
  - Skin fissures [Not Recovered/Not Resolved]
  - Injection site haemorrhage [Recovered/Resolved]
  - Dry skin [Not Recovered/Not Resolved]
  - Skin exfoliation [Not Recovered/Not Resolved]
  - Needle issue [Recovered/Resolved]

NARRATIVE: CASE EVENT DATE: 202008
